FAERS Safety Report 5680026-0 (Version None)
Quarter: 2008Q1

REPORT INFORMATION
  Report Type: 
  Country: None (occurrence: None)
  Receive Date: 20080325
  Receipt Date: 20080325
  Transmission Date: 20080703
  Serious: Yes (Hospitalization)
  Sender: FDA-Public Use
  Company Number: None

PATIENT
  Age: 59 Year
  Sex: Male
  Weight: 77.5651 kg

DRUGS (2)
  1. DEXAMETHASONE TAB [Suspect]
     Indication: BRAIN OEDEMA
     Dosage: 4 MG TID PO
     Route: 048
     Dates: start: 20080123, end: 20080324
  2. DEXAMETHASONE TAB [Suspect]
     Indication: NEOPLASM
     Dosage: 4 MG TID PO
     Route: 048
     Dates: start: 20080123, end: 20080324

REACTIONS (13)
  - ALOPECIA [None]
  - BLOOD SODIUM INCREASED [None]
  - COGNITIVE DISORDER [None]
  - CUSHINGOID [None]
  - DEEP VEIN THROMBOSIS [None]
  - HYPERGLYCAEMIC HYPEROSMOLAR NONKETOTIC SYNDROME [None]
  - HYPERTONIA [None]
  - MUSCULAR WEAKNESS [None]
  - PNEUMONIA ASPIRATION [None]
  - POLYURIA [None]
  - PSYCHOMOTOR RETARDATION [None]
  - PYREXIA [None]
  - RADIATION INJURY [None]
